FAERS Safety Report 16613547 (Version 2)
Quarter: 2019Q4

REPORT INFORMATION
  Report Type: Spontaneous
  Country: US (occurrence: US)
  Receive Date: 20190723
  Receipt Date: 20191203
  Transmission Date: 20200122
  Serious: No
  Sender: FDA-Public Use
  Company Number: US-CELGENEUS-USA-20190610194

PATIENT
  Sex: Male
  Weight: 64.92 kg

DRUGS (3)
  1. REVLIMID [Suspect]
     Active Substance: LENALIDOMIDE
     Dosage: 2.5 MILLIGRAM
     Route: 048
     Dates: start: 201911
  2. VELCADE [Concomitant]
     Active Substance: BORTEZOMIB
     Indication: NEUROPATHY PERIPHERAL
     Route: 065
     Dates: start: 2019
  3. REVLIMID [Suspect]
     Active Substance: LENALIDOMIDE
     Indication: PLASMA CELL MYELOMA
     Dosage: 25 MILLIGRAM
     Route: 048
     Dates: start: 20190423, end: 20190823

REACTIONS (7)
  - Dysgeusia [Not Recovered/Not Resolved]
  - Fall [Not Recovered/Not Resolved]
  - Paraesthesia [Not Recovered/Not Resolved]
  - Tremor [Not Recovered/Not Resolved]
  - Dizziness [Not Recovered/Not Resolved]
  - Neuropathy peripheral [Recovering/Resolving]
  - Head injury [Not Recovered/Not Resolved]

NARRATIVE: CASE EVENT DATE: 2019
